FAERS Safety Report 24835831 (Version 2)
Quarter: 2025Q1

REPORT INFORMATION
  Report Type: Report from Study
  Country: EG (occurrence: EG)
  Receive Date: 20250113
  Receipt Date: 20250129
  Transmission Date: 20250409
  Serious: Yes (Other)
  Sender: BOEHRINGER INGELHEIM
  Company Number: EG-BoehringerIngelheim-2025-BI-000750

PATIENT
  Age: 42 Year
  Sex: Female
  Weight: 115 kg

DRUGS (32)
  1. OFEV [Suspect]
     Active Substance: NINTEDANIB
     Indication: Pulmonary fibrosis
     Dates: start: 20241213
  2. Endoxane [with solupred] [Concomitant]
     Indication: Prophylaxis
     Dates: start: 2020, end: 2020
  3. CELLCEPT [Concomitant]
     Active Substance: MYCOPHENOLATE MOFETIL
     Indication: Immunodeficiency
     Dates: start: 2020, end: 2021
  4. Myfortek 360 [Concomitant]
     Indication: Immunodeficiency
     Dates: start: 2021
  5. Myfortek 360 [Concomitant]
     Dosage: 4 REDUCED TO 3 TABLETS/DAY
     Dates: start: 2021
  6. Solupred [Concomitant]
     Indication: Prophylaxis
     Dates: start: 2020
  7. ONEALFA [Concomitant]
     Active Substance: ALFACALCIDOL
     Indication: Immunodeficiency
     Dates: start: 2020
  8. Concor 10 plus [Concomitant]
     Indication: Prophylaxis
  9. Concor 10 plus [Concomitant]
     Indication: Hypertension
  10. Avivavasc 10/160 [Concomitant]
     Indication: Hypertension
  11. Eltroxin 50 [Concomitant]
     Indication: Prophylaxis
  12. Eltroxin 50 [Concomitant]
     Indication: Hypopituitarism
  13. Ator 10 mg [Concomitant]
     Indication: Hypercholesterolaemia
  14. Controloc 40 mg [Concomitant]
     Indication: Abdominal pain upper
     Dates: start: 2020, end: 2021
  15. NEXIUM [Concomitant]
     Active Substance: ESOMEPRAZOLE MAGNESIUM
     Indication: Abdominal pain upper
     Dates: start: 2021
  16. ITOPRIDE [Concomitant]
     Active Substance: ITOPRIDE
     Indication: Abdominal pain upper
     Dosage: (WHEN NEEDED)
     Dates: start: 2020
  17. MOTILIUM [Concomitant]
     Active Substance: DOMPERIDONE
     Indication: Abdominal pain upper
     Dosage: (WHEN NEEDED)
     Dates: start: 2020
  18. DIMETHICONE\MEBEVERINE [Concomitant]
     Active Substance: DIMETHICONE\MEBEVERINE
     Indication: Abdominal pain upper
  19. Colospasmin forte [Concomitant]
     Indication: Abdominal pain upper
  20. COLONA [Concomitant]
     Indication: Abdominal pain upper
  21. PRIMPERAN [Concomitant]
     Active Substance: METOCLOPRAMIDE HYDROCHLORIDE
     Indication: Abdominal pain upper
     Dosage: (WHEN NEEDED)
     Dates: start: 2020
  22. PLAQUENIL [Concomitant]
     Active Substance: HYDROXYCHLOROQUINE SULFATE
     Indication: Immune system disorder
     Dates: start: 2020
  23. PLAQUENIL [Concomitant]
     Active Substance: HYDROXYCHLOROQUINE SULFATE
  24. ASPIRIN [Concomitant]
     Active Substance: ASPIRIN
     Indication: Thrombosis
     Dates: start: 2020, end: 202407
  25. ASPIRIN [Concomitant]
     Active Substance: ASPIRIN
  26. TRENTAL [Concomitant]
     Active Substance: PENTOXIFYLLINE
     Indication: Muscular weakness
  27. DELTAVIT B12 [Concomitant]
     Indication: Supplementation therapy
     Dates: start: 2020
  28. DELTAVIT B12 [Concomitant]
  29. IRON [Concomitant]
     Active Substance: IRON
     Indication: Product used for unknown indication
     Dates: start: 2021
  30. VOLTAREN [Concomitant]
     Active Substance: DICLOFENAC SODIUM
     Indication: Pain
     Dates: start: 2020, end: 2022
  31. KETOROLAC TROMETHAMINE [Concomitant]
     Active Substance: KETOROLAC TROMETHAMINE
     Indication: Pain
  32. PANADOL EXTRA [Concomitant]
     Active Substance: ACETAMINOPHEN\CAFFEINE
     Indication: Pain

REACTIONS (1)
  - Angina pectoris [Not Recovered/Not Resolved]

NARRATIVE: CASE EVENT DATE: 20241213
